FAERS Safety Report 14146629 (Version 1)
Quarter: 2017Q4

REPORT INFORMATION
  Report Type: Spontaneous
  Country: US (occurrence: US)
  Receive Date: 20171031
  Receipt Date: 20171031
  Transmission Date: 20180321
  Serious: No
  Sender: FDA-Public Use
  Company Number: US-BAUSCH-BL-2017-019820

PATIENT
  Age: 38 Year
  Sex: Female

DRUGS (4)
  1. BEPREVE [Suspect]
     Active Substance: BEPOTASTINE BESILATE
     Indication: HYPERSENSITIVITY
  2. BEPREVE [Suspect]
     Active Substance: BEPOTASTINE BESILATE
     Indication: PRURITUS
     Route: 047
     Dates: start: 2017, end: 2017
  3. BEPREVE [Suspect]
     Active Substance: BEPOTASTINE BESILATE
     Indication: EYE PRURITUS
  4. BEPREVE [Suspect]
     Active Substance: BEPOTASTINE BESILATE
     Indication: ERYTHEMA

REACTIONS (3)
  - Sneezing [Recovered/Resolved]
  - Sinus disorder [Recovered/Resolved]
  - Off label use [Recovered/Resolved]

NARRATIVE: CASE EVENT DATE: 2017
